FAERS Safety Report 5085649-8 (Version None)
Quarter: 2006Q3

REPORT INFORMATION
  Report Type: 
  Country: None (occurrence: None)
  Receive Date: 20060822
  Receipt Date: 20020416
  Transmission Date: 20061208
  Serious: Yes (Hospitalization, Disabling, Other)
  Sender: FDA-Public Use
  Company Number: US-MERCK-0204USA02712

PATIENT
  Age: 69 Year
  Sex: Female
  Weight: 53 kg

DRUGS (13)
  1. ZOCOR [Suspect]
     Indication: HYPERCHOLESTEROLAEMIA
     Route: 048
     Dates: start: 20010123, end: 20020310
  2. ZOCOR [Suspect]
     Route: 048
     Dates: end: 20010101
  3. ZOCOR [Suspect]
     Indication: HYPERLIPIDAEMIA
     Route: 048
     Dates: start: 20010123, end: 20020310
  4. ZOCOR [Suspect]
     Route: 048
     Dates: end: 20010101
  5. FEMHRT [Concomitant]
     Route: 048
  6. PREMARIN [Concomitant]
     Route: 067
  7. SYNTHROID [Concomitant]
     Route: 048
  8. ASPIRIN [Concomitant]
     Route: 048
  9. NEXIUM [Concomitant]
     Route: 048
     Dates: end: 20020301
  10. TUMS [Concomitant]
     Route: 065
  11. CENTRUM SILVER [Concomitant]
     Route: 065
  12. PREMARIN [Concomitant]
     Route: 065
  13. ANTIMICROBIAL (UNSPECIFIED) [Suspect]
     Route: 065

REACTIONS (6)
  - BRONCHITIS ACUTE [None]
  - DEHYDRATION [None]
  - DRUG INTERACTION [None]
  - MYOSITIS [None]
  - PNEUMONIA [None]
  - RHABDOMYOLYSIS [None]
